FAERS Safety Report 24861378 (Version 1)
Quarter: 2025Q1

REPORT INFORMATION
  Report Type: Spontaneous
  Country: US (occurrence: US)
  Receive Date: 20250120
  Receipt Date: 20250120
  Transmission Date: 20250408
  Serious: No
  Sender: ROCHE
  Company Number: UM-ROCHE-10000182930

PATIENT
  Age: 43 Year
  Sex: Female
  Weight: 54.43 kg

DRUGS (2)
  1. ACTEMRA [Suspect]
     Active Substance: TOCILIZUMAB
     Indication: Polychondritis
     Dosage: IN THE LEG OR THE STOMACH
     Route: 058
     Dates: start: 2024
  2. HUMIRA [Concomitant]
     Active Substance: ADALIMUMAB

REACTIONS (2)
  - No adverse event [Unknown]
  - Off label use [Unknown]

NARRATIVE: CASE EVENT DATE: 20240101
